FAERS Safety Report 7335235-1 (Version None)
Quarter: 2011Q1

REPORT INFORMATION
  Report Type: 
  Country: None (occurrence: None)
  Receive Date: 20110307
  Receipt Date: 20110301
  Transmission Date: 20110831
  Serious: No
  Sender: FDA-Public Use
  Company Number: US-PFIZER INC-2011029017

PATIENT
  Age: 50 Year
  Sex: Male
  Weight: 124 kg

DRUGS (2)
  1. ADVIL COLD AND SINUS [Suspect]
     Indication: NASOPHARYNGITIS
     Dosage: 2 CAPLETS, 3X/DAY
     Route: 048
     Dates: start: 20110101, end: 20110207
  2. ADVIL COLD AND SINUS [Suspect]
     Indication: SINUS DISORDER

REACTIONS (1)
  - DRUG INEFFECTIVE [None]
